FAERS Safety Report 8926102 (Version 1)
Quarter: 2012Q4

REPORT INFORMATION
  Report Type: Report from Study
  Country: US (occurrence: US)
  Receive Date: 20121126
  Receipt Date: 20121126
  Transmission Date: 20130627
  Serious: Yes (Other)
  Sender: FDA-Public Use
  Company Number: US-ABBOTT-12P-163-1009537-00

PATIENT
  Age: 54 Year
  Sex: Female

DRUGS (14)
  1. HUMIRA [Suspect]
     Indication: ANKYLOSING SPONDYLITIS
     Dates: start: 201111
  2. TYLENOL [Concomitant]
     Indication: PAIN
     Dosage: 2 tab every 4-6 hours as needed
  3. TRAMADOL [Concomitant]
     Indication: PAIN
  4. SIMVASTATIN [Concomitant]
     Indication: BLOOD CHOLESTEROL INCREASED
  5. ZYRTEC [Concomitant]
     Indication: HYPERSENSITIVITY
  6. MICARDIS [Concomitant]
     Indication: HYPERTENSION
  7. SINGULAIR [Concomitant]
     Indication: ASTHMA
     Dosage: Daily
  8. COMBIVENT INHALER [Concomitant]
     Indication: ASTHMA
     Dosage: Daily
  9. ADVAIR DISC [Concomitant]
     Indication: ASTHMA
     Dosage: Daily
  10. ESTRATEST [Concomitant]
     Indication: HORMONE REPLACEMENT THERAPY
     Dosage: Daily
  11. VITAMIN A [Concomitant]
     Indication: VITAMIN SUPPLEMENTATION
     Dosage: Daily
  12. VITAMIN D [Concomitant]
     Indication: VITAMIN SUPPLEMENTATION
     Dosage: Daily
  13. VITAMIN K [Concomitant]
     Indication: VITAMIN SUPPLEMENTATION
     Dosage: Daily
  14. MULTIVITAMIN [Concomitant]
     Indication: VITAMIN SUPPLEMENTATION
     Dosage: daily

REACTIONS (3)
  - Weight decreased [Not Recovered/Not Resolved]
  - Inappropriate schedule of drug administration [Unknown]
  - Arthralgia [Unknown]
